FAERS Safety Report 9261681 (Version 1)
Quarter: 2013Q2

REPORT INFORMATION
  Report Type: Spontaneous
  Country: US (occurrence: US)
  Receive Date: 20130429
  Receipt Date: 20130429
  Transmission Date: 20140414
  Serious: Yes (Life-Threatening, Hospitalization, Other)
  Sender: FDA-Public Use
  Company Number: US-B.I. PHARMACEUTICALS,INC./RIDGEFIELD-2013-BI-11646GD

PATIENT
  Age: 80 Year
  Sex: Male

DRUGS (7)
  1. PRADAXA [Suspect]
     Indication: ATRIAL FIBRILLATION
     Route: 048
  2. ASPIRIN [Suspect]
  3. LEVOTHYROXINE [Concomitant]
  4. SIMVASTATIN [Concomitant]
  5. METOPROLOL [Concomitant]
  6. METFORMIN [Concomitant]
  7. DONEPEZIL [Concomitant]

REACTIONS (6)
  - Pulmonary haemorrhage [Recovered/Resolved]
  - Dyspnoea [Unknown]
  - Accidental overdose [Unknown]
  - Haemoptysis [Unknown]
  - Blood urine [Recovered/Resolved]
  - Occult blood positive [Recovered/Resolved]
